FAERS Safety Report 9888642 (Version 1)
Quarter: 2014Q1

REPORT INFORMATION
  Report Type: Spontaneous
  Country: US (occurrence: US)
  Receive Date: 20140211
  Receipt Date: 20140211
  Transmission Date: 20141002
  Serious: Yes (Other)
  Sender: FDA-Public Use
  Company Number: PHEH2014US002811

PATIENT
  Sex: Female

DRUGS (6)
  1. DIOVAN [Suspect]
     Dosage: UNK UKN, UNK
  2. WELCHOL [Concomitant]
  3. JANUMET [Concomitant]
     Dosage: 1 DF (1000 MG METF, 50 MG SITA), UNK
  4. PRIMIDONE [Concomitant]
  5. ZETIA [Concomitant]
  6. SINEMET [Concomitant]

REACTIONS (1)
  - Parkinson^s disease [Unknown]
